FAERS Safety Report 5140293-9 (Version None)
Quarter: 2006Q4

REPORT INFORMATION
  Report Type: 
  Country: None (occurrence: None)
  Receive Date: 20061031
  Receipt Date: 20060913
  Transmission Date: 20070319
  Serious: Yes (Hospitalization, Disabling)
  Sender: FDA-Public Use
  Company Number: JP-JPN-A200603686

PATIENT
  Age: 82 Year
  Sex: Female

DRUGS (9)
  1. PAXIL [Suspect]
     Indication: PANIC DISORDER
     Dosage: 20MG PER DAY
     Route: 048
     Dates: start: 20021011
  2. RISPERDAL [Suspect]
     Indication: DELUSIONAL DISORDER, PERSECUTORY TYPE
     Route: 048
     Dates: start: 20060602
  3. AMOBAN [Concomitant]
     Indication: INSOMNIA
     Dosage: 15MG PER DAY
     Route: 048
     Dates: start: 20010522
  4. DIOVAN [Concomitant]
     Indication: HYPERTENSION
     Dosage: 80MG PER DAY
     Route: 048
     Dates: start: 20021227
  5. NORVASC [Concomitant]
     Indication: HYPERTENSION
     Dosage: 5MG PER DAY
     Route: 048
     Dates: start: 20021213
  6. ONEALFA [Concomitant]
     Indication: OSTEOPOROSIS
     Dosage: .5MCG PER DAY
     Route: 048
     Dates: start: 20010522
  7. FLUCAM [Concomitant]
     Indication: ARTHRALGIA
     Dosage: 27MG PER DAY
     Route: 048
     Dates: start: 20010714
  8. GASTER D [Concomitant]
     Indication: GASTRITIS
     Dosage: 20MG PER DAY
     Route: 048
     Dates: start: 20060818
  9. TAGAMET [Concomitant]
     Indication: GASTRITIS
     Dosage: 400MG PER DAY
     Dates: start: 20010522, end: 20060817

REACTIONS (14)
  - BACK PAIN [None]
  - DECREASED APPETITE [None]
  - DELUSION [None]
  - DIZZINESS [None]
  - DRUG INTERACTION [None]
  - FACE OEDEMA [None]
  - FAECAL INCONTINENCE [None]
  - FALL [None]
  - INJURY [None]
  - LIVER DISORDER [None]
  - MUSCULAR WEAKNESS [None]
  - OEDEMA PERIPHERAL [None]
  - OVERDOSE [None]
  - SEDATION [None]
